FAERS Safety Report 5140086-2 (Version None)
Quarter: 2006Q4

REPORT INFORMATION
  Report Type: 
  Country: None (occurrence: None)
  Receive Date: 20061026
  Receipt Date: 20061026
  Transmission Date: 20070319
  Serious: Yes (Hospitalization)
  Sender: FDA-Public Use
  Company Number: None

PATIENT
  Sex: Female
  Weight: 36 kg

DRUGS (4)
  1. MYFORTIC [Suspect]
     Indication: PROPHYLAXIS AGAINST TRANSPLANT REJECTION
     Dosage: 720 PO BID
     Route: 048
     Dates: start: 20060912
  2. CIPROFLOXACIN [Concomitant]
  3. AMPICILLIN SODIUM [Concomitant]
  4. PROGRAF [Concomitant]

REACTIONS (8)
  - ABDOMINAL PAIN [None]
  - BODY TEMPERATURE DECREASED [None]
  - DIARRHOEA [None]
  - FLANK PAIN [None]
  - HAEMATURIA [None]
  - MALAISE [None]
  - NAUSEA [None]
  - VOMITING [None]
